FAERS Safety Report 15543661 (Version 1)
Quarter: 2018Q4

REPORT INFORMATION
  Report Type: Spontaneous
  Country: US (occurrence: US)
  Receive Date: 20181023
  Receipt Date: 20181023
  Transmission Date: 20190205
  Serious: No
  Sender: FDA-Public Use
  Company Number: US-PERRIGO-18US006590

PATIENT
  Age: 44 Year
  Sex: Female
  Weight: 58.96 kg

DRUGS (1)
  1. MESALAZINE [Suspect]
     Active Substance: MESALAMINE
     Indication: COLITIS ULCERATIVE
     Dosage: APPROXIMATELY ONE ENEMA (1/2 FROM TWO DIFFERENT BOTTLES), QD
     Route: 054
     Dates: start: 20180618, end: 20180619

REACTIONS (1)
  - Incorrect dose administered [Recovered/Resolved]

NARRATIVE: CASE EVENT DATE: 20180618
